FAERS Safety Report 4513577-2 (Version None)
Quarter: 2004Q4

REPORT INFORMATION
  Report Type: 
  Country: None (occurrence: None)
  Receive Date: 20041130
  Receipt Date: 20040804
  Transmission Date: 20050328
  Serious: No
  Sender: FDA-Public Use
  Company Number: US-GLAXOSMITHKLINE-A0520966A

PATIENT
  Age: 49 Year
  Sex: Female
  Weight: 54.5 kg

DRUGS (4)
  1. WELLBUTRIN XL [Suspect]
     Indication: DEPRESSION
     Dosage: 300MG PER DAY
     Route: 048
     Dates: start: 20040708
  2. XANAX [Concomitant]
  3. ZOFRAN [Concomitant]
  4. UNKNOWN MEDICATION [Concomitant]
     Route: 065

REACTIONS (1)
  - DRUG INEFFECTIVE [None]
